FAERS Safety Report 20987000 (Version 2)
Quarter: 2022Q3

REPORT INFORMATION
  Report Type: Other
  Country: EE (occurrence: None)
  Receive Date: 20220621
  Receipt Date: 20220702
  Transmission Date: 20221027
  Serious: Yes (Other)
  Sender: FDA-Public Use
  Company Number: EE-ROCHE-3116893

PATIENT
  Age: 59 Year
  Sex: Male

DRUGS (11)
  1. GLOFITAMAB [Suspect]
     Active Substance: GLOFITAMAB
     Indication: Diffuse large B-cell lymphoma refractory
     Route: 065
     Dates: start: 20220607
  2. GLOFITAMAB [Suspect]
     Active Substance: GLOFITAMAB
     Route: 065
     Dates: start: 20220614
  3. OBINUTUZUMAB [Suspect]
     Active Substance: OBINUTUZUMAB
     Indication: Diffuse large B-cell lymphoma refractory
     Route: 042
     Dates: start: 20220531
  4. CARDACE (ESTONIA) [Concomitant]
  5. NEBIVOLOL [Concomitant]
     Active Substance: NEBIVOLOL
  6. ASPIRIN [Concomitant]
     Active Substance: ASPIRIN
  7. ACYCLOVIR [Concomitant]
     Active Substance: ACYCLOVIR
  8. QUETIAPINE FUMARATE [Concomitant]
     Active Substance: QUETIAPINE FUMARATE
  9. ALLOPURINOL [Concomitant]
     Active Substance: ALLOPURINOL
  10. ACETAMINOPHEN\CODEINE PHOSPHATE [Concomitant]
     Active Substance: ACETAMINOPHEN\CODEINE PHOSPHATE
     Dosage: 500/300MG
  11. NEUROTIN (UNK INGREDIENTS) [Concomitant]

REACTIONS (5)
  - Neurotoxicity [Unknown]
  - Bronchospasm [Unknown]
  - Cytokine release syndrome [Not Recovered/Not Resolved]
  - Tumour flare [Unknown]
  - Drug ineffective [Unknown]

NARRATIVE: CASE EVENT DATE: 20220601
